FAERS Safety Report 4889088-1 (Version None)
Quarter: 2005Q4

REPORT INFORMATION
  Report Type: 
  Country: None (occurrence: None)
  Receive Date: 20051216
  Receipt Date: 20050922
  Transmission Date: 20060501
  Serious: No
  Sender: FDA-Public Use
  Company Number: USA0509108888

PATIENT
  Age: 35 Year
  Sex: Male

DRUGS (1)
  1. CIALIS [Suspect]
     Indication: ERECTILE DYSFUNCTION
     Dosage: 20 MG

REACTIONS (6)
  - BACK PAIN [None]
  - OCULAR HYPERAEMIA [None]
  - POLLAKIURIA [None]
  - RHINORRHOEA [None]
  - SNEEZING [None]
  - URINARY HESITATION [None]
